FAERS Safety Report 7390598-6 (Version None)
Quarter: 2011Q2

REPORT INFORMATION
  Report Type: 
  Country: None (occurrence: None)
  Receive Date: 20110404
  Receipt Date: 20110323
  Transmission Date: 20111010
  Serious: Yes (Hospitalization)
  Sender: FDA-Public Use
  Company Number: US-BIOGENIDEC-2008BI026615

PATIENT
  Age: 56 Year
  Sex: Female

DRUGS (3)
  1. AVONEX [Suspect]
     Route: 030
     Dates: start: 19980101, end: 20030101
  2. CELLCEPT [Concomitant]
  3. AVONEX [Suspect]
     Indication: MULTIPLE SCLEROSIS
     Route: 030
     Dates: start: 20030101

REACTIONS (6)
  - MUSCULOSKELETAL STIFFNESS [None]
  - EYE DISORDER [None]
  - GENERAL SYMPTOM [None]
  - BENIGN BREAST NEOPLASM [None]
  - CEREBRAL INFARCTION [None]
  - TACITURNITY [None]
